FAERS Safety Report 4359350-X (Version None)
Quarter: 2004Q2

REPORT INFORMATION
  Report Type: 
  Country: None (occurrence: None)
  Receive Date: 20040512
  Receipt Date: 20040504
  Transmission Date: 20050107
  Serious: Yes (Other)
  Sender: FDA-Public Use
  Company Number: 7934

PATIENT
  Age: 58 Year
  Sex: Female
  Weight: 48.9 kg

DRUGS (5)
  1. METHOTREXATE [Suspect]
     Indication: RHEUMATOID ARTHRITIS
     Dosage: 12.5 MG WEEKLY; PO
     Route: 048
     Dates: start: 19980501, end: 20040201
  2. SULPHASALAZINE [Concomitant]
  3. OMEPRAZOLE [Concomitant]
  4. MEDROXYPROGESTERONE [Concomitant]
  5. INDOMETHACIN [Concomitant]

REACTIONS (1)
  - PLEURAL EFFUSION [None]
